FAERS Safety Report 16544471 (Version 9)
Quarter: 2020Q4

REPORT INFORMATION
  Report Type: Report from Study
  Country: GB (occurrence: GB)
  Receive Date: 20190709
  Receipt Date: 20201029
  Transmission Date: 20210113
  Serious: Yes (Other)
  Sender: FDA-Public Use
  Company Number: PHHY2018GB066069

PATIENT
  Age: 73 Year
  Sex: Female

DRUGS (6)
  1. SANDOSTATIN LAR DEPOT [Suspect]
     Active Substance: OCTREOTIDE ACETATE
     Dosage: 30 MG, QMO (EVERY 4 WEEKS)
     Route: 030
  2. ADIZEM [Concomitant]
     Active Substance: DILTIAZEM HYDROCHLORIDE
     Dosage: 120 MG, QD
     Route: 065
  3. ADIZEM [Concomitant]
     Active Substance: DILTIAZEM HYDROCHLORIDE
     Indication: BLOOD PRESSURE ABNORMAL
     Dosage: 180 MG, QD
     Route: 065
  4. SANDOSTATIN LAR DEPOT [Suspect]
     Active Substance: OCTREOTIDE ACETATE
     Indication: NEUROENDOCRINE TUMOUR
     Dosage: 30 MG, QMO (EVERY 4 WEEKS)
     Route: 030
     Dates: start: 201711
  5. SANDOSTATIN LAR DEPOT [Suspect]
     Active Substance: OCTREOTIDE ACETATE
     Dosage: 30 MG, QMO (EVERY 4 WEEKS)
     Route: 030
  6. SANDOSTATIN LAR DEPOT [Suspect]
     Active Substance: OCTREOTIDE ACETATE
     Dosage: 30 MG, QMO (EVERY 4 WEEKS)
     Route: 030

REACTIONS (34)
  - Dyspnoea [Unknown]
  - Nasopharyngitis [Unknown]
  - Catarrh [Unknown]
  - Contusion [Not Recovered/Not Resolved]
  - Orthostatic hypotension [Unknown]
  - Lichen sclerosus [Not Recovered/Not Resolved]
  - Joint swelling [Not Recovered/Not Resolved]
  - Cough [Unknown]
  - Fall [Unknown]
  - Myocardial ischaemia [Unknown]
  - Vitamin B complex deficiency [Unknown]
  - Vulvovaginal candidiasis [Not Recovered/Not Resolved]
  - Localised infection [Recovered/Resolved]
  - Influenza [Unknown]
  - Fatigue [Unknown]
  - Sciatica [Not Recovered/Not Resolved]
  - Vitamin D decreased [Unknown]
  - Pain in extremity [Unknown]
  - Injection site mass [Unknown]
  - Pelvic bone injury [Not Recovered/Not Resolved]
  - Back pain [Not Recovered/Not Resolved]
  - Respiratory tract infection viral [Unknown]
  - Epistaxis [Unknown]
  - Pulmonary mass [Unknown]
  - Cellulitis [Unknown]
  - Type 2 diabetes mellitus [Unknown]
  - Bradycardia [Unknown]
  - Seasonal allergy [Unknown]
  - Blood blister [Unknown]
  - Hepatic lesion [Unknown]
  - Dizziness [Unknown]
  - Urinary tract infection [Unknown]
  - Needle issue [Unknown]
  - Nausea [Unknown]

NARRATIVE: CASE EVENT DATE: 20180410
